FAERS Safety Report 7232600-8 (Version None)
Quarter: 2011Q1

REPORT INFORMATION
  Report Type: 
  Country: None (occurrence: None)
  Receive Date: 20110119
  Receipt Date: 20110106
  Transmission Date: 20110831
  Serious: Yes (Other)
  Sender: FDA-Public Use
  Company Number: PHFR2010GB05982

PATIENT
  Sex: Male

DRUGS (7)
  1. CLOZARIL [Suspect]
     Indication: SCHIZOPHRENIA
     Dosage: 200 MG
     Route: 048
     Dates: start: 20080204
  2. BECLOMETHASONE DIPROPIONATE [Concomitant]
     Indication: CHRONIC OBSTRUCTIVE PULMONARY DISEASE
  3. SALBUTAMOL [Concomitant]
     Indication: ASTHMA
     Dosage: 2 DF (PUFFS), PRN
  4. SALBUTAMOL [Concomitant]
     Indication: CHRONIC OBSTRUCTIVE PULMONARY DISEASE
  5. DIAZEPAM [Concomitant]
     Indication: ANXIETY
     Dosage: 20 MG
     Route: 048
  6. BECLOMETHASONE DIPROPIONATE [Concomitant]
     Indication: ASTHMA
     Dosage: 2 DF (PUFFS), BID
  7. DIAZEPAM [Concomitant]
     Indication: INSOMNIA

REACTIONS (3)
  - LOWER RESPIRATORY TRACT INFECTION [None]
  - NEUTROPHIL COUNT INCREASED [None]
  - WHITE BLOOD CELL COUNT INCREASED [None]
